FAERS Safety Report 25752397 (Version 1)
Quarter: 2025Q3

REPORT INFORMATION
  Report Type: Spontaneous
  Country: EU (occurrence: EU)
  Receive Date: 20250902
  Receipt Date: 20250902
  Transmission Date: 20251021
  Serious: Yes (Other)
  Sender: OTSUKA
  Company Number: EU-SANDOZ-SDZ2025DE059908

PATIENT
  Age: 52 Year
  Sex: Female

DRUGS (3)
  1. ABILIFY [Interacting]
     Active Substance: ARIPIPRAZOLE
     Indication: Product used for unknown indication
     Route: 065
  2. CLOZAPINE [Interacting]
     Active Substance: CLOZAPINE
     Indication: Psychotic disorder
     Dosage: 1 DF, QD (1 TABLET IN THE EVENING)
     Route: 065
     Dates: start: 1993
  3. CLOZAPINE [Interacting]
     Active Substance: CLOZAPINE
     Dosage: 1 DF, QD (1 TABLET AT NIGHTS)
     Route: 065
     Dates: start: 1993

REACTIONS (5)
  - Psychotic disorder [Recovering/Resolving]
  - Head discomfort [Recovering/Resolving]
  - Drooling [Recovering/Resolving]
  - Nausea [Recovered/Resolved]
  - Drug interaction [Recovering/Resolving]

NARRATIVE: CASE EVENT DATE: 20200101
